FAERS Safety Report 5605736-2 (Version None)
Quarter: 2008Q1

REPORT INFORMATION
  Report Type: 
  Country: None (occurrence: None)
  Receive Date: 20080123
  Receipt Date: 20080107
  Transmission Date: 20080703
  Serious: Yes (Other)
  Sender: FDA-Public Use
  Company Number: 2008JP000031

PATIENT
  Age: 79 Year
  Sex: Female

DRUGS (1)
  1. PROGRAF [Suspect]
     Dosage: 3 MG, D, ORAL
     Route: 048

REACTIONS (1)
  - MYOCARDITIS [None]
